FAERS Safety Report 5798633-3 (Version None)
Quarter: 2008Q3

REPORT INFORMATION
  Report Type: 
  Country: None (occurrence: None)
  Receive Date: 20080702
  Receipt Date: 20080619
  Transmission Date: 20090109
  Serious: Yes (Hospitalization)
  Sender: FDA-Public Use
  Company Number: US-ELI_LILLY_AND_COMPANY-US200806004913

PATIENT
  Sex: Female

DRUGS (4)
  1. FORTEO [Suspect]
     Indication: OSTEOPOROSIS
     Dates: start: 20061001
  2. AGGRENOX [Concomitant]
     Indication: THROMBOSIS
  3. PLAVIX [Concomitant]
     Indication: THROMBOSIS
     Dates: start: 20000101
  4. PLAVIX [Concomitant]
     Dates: start: 20080601

REACTIONS (9)
  - CAROTID ARTERY DISEASE [None]
  - CEREBROVASCULAR ACCIDENT [None]
  - CYST [None]
  - DRUG INTOLERANCE [None]
  - EYE HAEMORRHAGE [None]
  - EYELID OEDEMA [None]
  - NERVOUSNESS [None]
  - RASH ERYTHEMATOUS [None]
  - VISUAL ACUITY REDUCED [None]
